FAERS Safety Report 15033840 (Version 15)
Quarter: 2025Q1

REPORT INFORMATION
  Report Type: Report from Study
  Country: DE (occurrence: DE)
  Receive Date: 20180619
  Receipt Date: 20250211
  Transmission Date: 20250409
  Serious: Yes (Hospitalization, Other)
  Sender: ROCHE
  Company Number: DE-ROCHE-2130154

PATIENT
  Age: 47 Year
  Sex: Female

DRUGS (22)
  1. OCRELIZUMAB [Suspect]
     Active Substance: OCRELIZUMAB
     Indication: Relapsing-remitting multiple sclerosis
     Route: 042
     Dates: start: 20180515
  2. OCRELIZUMAB [Suspect]
     Active Substance: OCRELIZUMAB
     Route: 042
     Dates: start: 20180529
  3. OCRELIZUMAB [Suspect]
     Active Substance: OCRELIZUMAB
     Route: 042
     Dates: start: 20181112
  4. OCRELIZUMAB [Suspect]
     Active Substance: OCRELIZUMAB
     Route: 042
     Dates: start: 20190514
  5. OCRELIZUMAB [Suspect]
     Active Substance: OCRELIZUMAB
     Route: 042
     Dates: start: 20191118
  6. OCRELIZUMAB [Suspect]
     Active Substance: OCRELIZUMAB
     Route: 042
     Dates: start: 20201130
  7. OCRELIZUMAB [Suspect]
     Active Substance: OCRELIZUMAB
     Route: 042
     Dates: start: 20200528
  8. OCRELIZUMAB [Suspect]
     Active Substance: OCRELIZUMAB
     Route: 042
  9. OCRELIZUMAB [Suspect]
     Active Substance: OCRELIZUMAB
     Dosage: 212 DAYS
     Route: 042
     Dates: start: 20210630
  10. PANTOPRAZOLE SODIUM [Suspect]
     Active Substance: PANTOPRAZOLE SODIUM
     Indication: Product used for unknown indication
     Dosage: 1-0-0
     Route: 065
  11. ALLOPURINOL [Concomitant]
     Active Substance: ALLOPURINOL
     Route: 065
  12. CANDESARTAN [Concomitant]
     Active Substance: CANDESARTAN
     Dosage: 1-0-0
  13. GABAPENTIN [Concomitant]
     Active Substance: GABAPENTIN
     Indication: Muscle spasticity
     Dosage: 1-1-1
  14. GABAPENTIN [Concomitant]
     Active Substance: GABAPENTIN
     Dosage: 1-0-1
  15. BACLOFEN [Concomitant]
     Active Substance: BACLOFEN
     Indication: Muscle spasticity
     Dosage: 1-0-1
     Route: 048
  16. BACLOFEN [Concomitant]
     Active Substance: BACLOFEN
     Route: 048
  17. CITALOPRAM [Concomitant]
     Active Substance: CITALOPRAM
     Indication: Depression
     Dosage: 1-0-0
     Route: 048
  18. CROMOLYN SODIUM\REPROTEROL HYDROCHLORIDE [Concomitant]
     Active Substance: CROMOLYN SODIUM\REPROTEROL HYDROCHLORIDE
  19. VIMPAT [Concomitant]
     Active Substance: LACOSAMIDE
     Indication: Epilepsy
     Dosage: 1-0-1
     Route: 048
  20. COMIRNATY [Concomitant]
     Dates: start: 20210409, end: 20210409
  21. COMIRNATY [Concomitant]
     Dates: start: 20210521, end: 20210521
  22. NOVALGIN (METAMIZOLE SODIUM) [Concomitant]
     Active Substance: METAMIZOLE SODIUM

REACTIONS (33)
  - Fatigue [Recovered/Resolved]
  - Hypertension [Unknown]
  - Otitis media [Recovered/Resolved]
  - Asthenia [Recovered/Resolved]
  - Peripheral swelling [Recovering/Resolving]
  - Nasopharyngitis [Recovered/Resolved]
  - Rash pruritic [Recovered/Resolved]
  - Seasonal allergy [Recovered/Resolved]
  - Erythema [Recovered/Resolved]
  - Fatigue [Not Recovered/Not Resolved]
  - Palpitations [Recovered/Resolved]
  - Balance disorder [Recovered/Resolved]
  - Dermatitis allergic [Recovered/Resolved]
  - Lipoedema [Not Recovered/Not Resolved]
  - Osteonecrosis [Not Recovered/Not Resolved]
  - Tumour marker increased [Recovered/Resolved]
  - Cervical spinal stenosis [Recovered/Resolved]
  - Platelet count decreased [Recovered/Resolved]
  - Dry eye [Not Recovered/Not Resolved]
  - Arthralgia [Recovered/Resolved]
  - Muscle spasms [Recovered/Resolved]
  - Platelet count decreased [Recovered/Resolved]
  - Osteonecrosis [Unknown]
  - Pneumonia [Unknown]
  - COVID-19 [Recovered/Resolved]
  - Infection susceptibility increased [Recovered/Resolved]
  - White blood cell count increased [Recovered/Resolved]
  - Osteonecrosis [Recovered/Resolved]
  - Cognitive disorder [Recovered/Resolved]
  - Gait disturbance [Recovered/Resolved]
  - Weight increased [Not Recovered/Not Resolved]
  - Fatigue [Not Recovered/Not Resolved]
  - Stress [Not Recovered/Not Resolved]

NARRATIVE: CASE EVENT DATE: 20180515
